FAERS Safety Report 16077259 (Version 1)
Quarter: 2019Q1

REPORT INFORMATION
  Report Type: Spontaneous
  Country: US (occurrence: US)
  Receive Date: 20190315
  Receipt Date: 20190315
  Transmission Date: 20190418
  Serious: Yes (Death, Other)
  Sender: FDA-Public Use
  Company Number: US-ACADIA PHARMACEUTICALS INC.-ACA-2019-012150

PATIENT

DRUGS (1)
  1. PIMAVANSERIN [Suspect]
     Active Substance: PIMAVANSERIN
     Indication: PSYCHOTIC DISORDER
     Dosage: UNK

REACTIONS (3)
  - Nonspecific reaction [Unknown]
  - Death [Fatal]
  - Drug ineffective [Unknown]
